FAERS Safety Report 9806307 (Version 5)
Quarter: 2014Q1

REPORT INFORMATION
  Report Type: Report from Study
  Country: AU (occurrence: AU)
  Receive Date: 20140109
  Receipt Date: 20140304
  Transmission Date: 20141002
  Serious: Yes (Death)
  Sender: FDA-Public Use
  Company Number: PHHY2014AU002294

PATIENT
  Sex: Female

DRUGS (9)
  1. ACLASTA [Suspect]
     Indication: OSTEOPOROSIS
     Dosage: 5 MG/100ML ANNUALLY
     Route: 042
     Dates: start: 20130125
  2. CARBIMAZOLE [Concomitant]
     Indication: HYPERTHYROIDISM
     Dosage: 0.5 TABLET (2.5MG), DAILY
  3. MICARDIS [Concomitant]
     Indication: HYPERTENSION
     Dosage: 1 TABLET (40 MG), DAILY
  4. LIPEX [Concomitant]
     Indication: HYPERLIPIDAEMIA
     Dosage: 1 TABLET (20 MG), UNK
  5. OSTELIN VITAMIN D [Concomitant]
     Indication: VITAMIN D DEFICIENCY
     Dosage: 1 CAPSULE OF 25 UG, DAILY
  6. NEO B12 [Concomitant]
     Indication: VITAMIN D DEFICIENCY
     Dosage: 1000 UG/1ML, 1 EVERY 3 MONTHS
  7. ASPIRINE [Concomitant]
     Dosage: 1 CAPSULE OF 100 MG, DAILY
  8. CLOPIDOGREL [Concomitant]
     Dosage: 1 ATBLET OF 75 MG, DAILY
  9. ZANTAC RELIEF [Concomitant]
     Dosage: 1 TABLET (150 MG), DAILY

REACTIONS (1)
  - Death [Fatal]
